FAERS Safety Report 13216394 (Version 1)
Quarter: 2017Q1

REPORT INFORMATION
  Report Type: Spontaneous
  Country: US (occurrence: US)
  Receive Date: 20170210
  Receipt Date: 20170210
  Transmission Date: 20170428
  Serious: Yes (Hospitalization)
  Sender: FDA-Public Use
  Company Number: US-BRISTOL-MYERS SQUIBB COMPANY-BMS-2017-004902

PATIENT
  Age: 21 Year
  Sex: Female

DRUGS (1)
  1. MEGACE [Suspect]
     Active Substance: MEGESTROL ACETATE
     Indication: EATING DISORDER
     Dosage: 20 MG, UNK
     Route: 065

REACTIONS (2)
  - Product use issue [Unknown]
  - Eating disorder [Unknown]
